FAERS Safety Report 9674750 (Version 1)
Quarter: 2013Q4

REPORT INFORMATION
  Report Type: Report from Study
  Country: CA (occurrence: CA)
  Receive Date: 20131107
  Receipt Date: 20131107
  Transmission Date: 20140711
  Serious: Yes (Other)
  Sender: FDA-Public Use
  Company Number: CA-JNJFOC-20131019793

PATIENT
  Age: 52 Year
  Sex: Female

DRUGS (5)
  1. REMICADE [Suspect]
     Indication: RHEUMATOID ARTHRITIS
     Route: 042
  2. TYLENOL [Concomitant]
     Indication: PREMEDICATION
     Dosage: 15-30 MINUTES PRIOR TO INFLIXIMAB INFUSION
     Route: 048
  3. BENADRYL [Concomitant]
     Indication: PREMEDICATION
     Dosage: 15-30 MINUTES PRIOR TO INFLIXIMAB INFUSION
     Route: 042
  4. HYDROCORTISONE [Concomitant]
     Indication: PREMEDICATION
     Dosage: 15-30 MINUTES PRIOR TO INFLIXIMAB INFUSION
     Route: 042
  5. MAXERAN [Concomitant]
     Indication: PREMEDICATION
     Dosage: 30 MINUTES PRIOR TO INFLIXIMAB INFUSION
     Route: 042

REACTIONS (2)
  - Cataract [Unknown]
  - Headache [Unknown]
